FAERS Safety Report 19056732 (Version 1)
Quarter: 2021Q1

REPORT INFORMATION
  Report Type: Spontaneous
  Country: US (occurrence: US)
  Receive Date: 20210325
  Receipt Date: 20210325
  Transmission Date: 20210420
  Serious: Yes (Life-Threatening, Other)
  Sender: FDA-Public Use
  Company Number: US-NANJING KING-FRIEND BIOCHEMICAL PHARMACEUTICAL CO. LTD.-2021NKF00034

PATIENT
  Age: 79 Year
  Sex: Male

DRUGS (3)
  1. ENOXAPARIN SODIUM. [Suspect]
     Active Substance: ENOXAPARIN SODIUM
     Indication: ATRIAL FLUTTER
     Route: 058
  2. METOPROLOL. [Concomitant]
     Active Substance: METOPROLOL
     Indication: ATRIAL FLUTTER
     Route: 065
  3. DILTIAZEM. [Concomitant]
     Active Substance: DILTIAZEM
     Indication: ATRIAL FLUTTER
     Route: 042

REACTIONS (3)
  - Chest wall haematoma [Recovered/Resolved]
  - Shock haemorrhagic [Recovered/Resolved]
  - Renal tubular necrosis [Recovered/Resolved]
